FAERS Safety Report 5819339-8 (Version None)
Quarter: 2008Q3

REPORT INFORMATION
  Report Type: 
  Country: None (occurrence: None)
  Receive Date: 20080718
  Receipt Date: 20080702
  Transmission Date: 20090109
  Serious: Yes (Other)
  Sender: FDA-Public Use
  Company Number: 1000000018

PATIENT
  Sex: Male

DRUGS (10)
  1. ESCITALOPRAM [Suspect]
     Dosage: 5 MG, (5 MG, 1 IN 1 D), ORAL
     Route: 048
  2. EXELON [Concomitant]
  3. L-DOPA [Concomitant]
  4. ACE INHIBITOR NOS [Concomitant]
  5. PREVISCAN [Concomitant]
  6. RIVOTRIL [Concomitant]
  7. OXAZEPAM [Concomitant]
  8. HALOPERIDOL [Concomitant]
  9. MOTILIUM [Concomitant]
  10. COMTAN [Concomitant]

REACTIONS (6)
  - CONDITION AGGRAVATED [None]
  - EXTRAPYRAMIDAL DISORDER [None]
  - FATIGUE [None]
  - GENERAL PHYSICAL HEALTH DETERIORATION [None]
  - PARKINSONIAN GAIT [None]
  - PSYCHOMOTOR RETARDATION [None]
